FAERS Safety Report 8110722-7 (Version None)
Quarter: 2012Q1

REPORT INFORMATION
  Report Type: 
  Country: None (occurrence: None)
  Receive Date: 20120203
  Receipt Date: 20120131
  Transmission Date: 20120608
  Serious: No
  Sender: FDA-Public Use
  Company Number: US-PFIZER INC-2011006575

PATIENT
  Sex: Female
  Weight: 75 kg

DRUGS (2)
  1. VERAPAMIL HCL [Suspect]
     Indication: HYPERTENSION
  2. VERAPAMIL HCL [Suspect]
     Indication: HEART RATE INCREASED
     Dosage: UNK

REACTIONS (1)
  - DRUG INEFFECTIVE [None]
